FAERS Safety Report 11251659 (Version 1)
Quarter: 2015Q3

REPORT INFORMATION
  Report Type: Spontaneous
  Country: US (occurrence: US)
  Receive Date: 20150708
  Receipt Date: 20150708
  Transmission Date: 20151125
  Serious: Yes (Death, Hospitalization)
  Sender: FDA-Public Use
  Company Number: US-ELI_LILLY_AND_COMPANY-US201202002154

PATIENT
  Sex: Male
  Weight: 97.69 kg

DRUGS (5)
  1. GEMZAR [Suspect]
     Active Substance: GEMCITABINE HYDROCHLORIDE
     Indication: LYMPHOMA
     Dosage: 1500 MG, EVERY WEEK
     Route: 042
     Dates: start: 20110329, end: 20110510
  2. BENDAMUSTINE [Concomitant]
     Active Substance: BENDAMUSTINE
     Dosage: UNK, SINGLE
     Dates: start: 20110630, end: 20110630
  3. NAVELBINE [Concomitant]
     Active Substance: VINORELBINE TARTRATE
     Dosage: UNK, UNKNOWN
  4. RITUXAN [Concomitant]
     Active Substance: RITUXIMAB
     Dosage: UNK, SINGLE
     Dates: start: 20110630, end: 20110630
  5. GEMZAR [Suspect]
     Active Substance: GEMCITABINE HYDROCHLORIDE
     Dosage: 760 MG, 2 WEEKS ON, 1 WEEK OFF
     Route: 042

REACTIONS (3)
  - Neoplasm progression [Fatal]
  - Infection [Unknown]
  - Respiratory failure [Fatal]
